FAERS Safety Report 19312753 (Version 2)
Quarter: 2021Q2

REPORT INFORMATION
  Report Type: Spontaneous
  Country: US (occurrence: US)
  Receive Date: 20210527
  Receipt Date: 20210611
  Transmission Date: 20210717
  Serious: No
  Sender: FDA-Public Use
  Company Number: NVSC2021US114647

PATIENT
  Age: 39 Year
  Sex: Female
  Weight: 170 kg

DRUGS (1)
  1. ILARIS [Suspect]
     Active Substance: CANAKINUMAB
     Indication: STILL^S DISEASE
     Dosage: 300 MG 10 WEEK
     Route: 058
     Dates: start: 20170701

REACTIONS (2)
  - Upper respiratory tract infection [Unknown]
  - Nodule [Unknown]

NARRATIVE: CASE EVENT DATE: 20210511
